FAERS Safety Report 10170365 (Version 2)
Quarter: 2014Q2

REPORT INFORMATION
  Report Type: Spontaneous
  Country: US (occurrence: US)
  Receive Date: 20140513
  Receipt Date: 20140522
  Transmission Date: 20141212
  Serious: Yes (Hospitalization)
  Sender: FDA-Public Use
  Company Number: US-PFIZER INC-2014129430

PATIENT
  Age: 53 Year
  Sex: Female

DRUGS (9)
  1. LISINOPRIL [Suspect]
     Dosage: 10 MG, DAILY
     Route: 065
  2. SPIRONOLACTONE [Suspect]
     Dosage: 25 MG, 2X/DAY
     Route: 065
  3. POTASSIUM CHLORIDE [Suspect]
     Dosage: 20 MEQ, 2X/DAY
     Route: 065
  4. CARVEDILOL [Concomitant]
     Dosage: 25 MG, 2X/DAY
     Route: 065
  5. SIMVASTATIN [Concomitant]
     Dosage: 40 MG, DAILY
     Route: 065
  6. DIGOXIN [Concomitant]
     Dosage: 0.125 MG, DAILY
     Route: 065
  7. FUROSEMIDE [Concomitant]
     Dosage: 40 MG, DAILY
     Route: 065
  8. INSULIN [Concomitant]
     Dosage: 70/30 (40 UNITS EVERY AM, 25 UNITS EVERY PM)
     Route: 065
  9. FERROUS SULFATE [Concomitant]
     Dosage: 325 MG, DAILY
     Route: 065

REACTIONS (3)
  - Hyperkalaemia [Recovered/Resolved]
  - Atrioventricular block first degree [Recovered/Resolved]
  - Muscular weakness [Recovered/Resolved]
